FAERS Safety Report 5245343-7 (Version None)
Quarter: 2007Q1

REPORT INFORMATION
  Report Type: 
  Country: None (occurrence: None)
  Receive Date: 20070223
  Receipt Date: 20070212
  Transmission Date: 20070707
  Serious: Yes (Hospitalization)
  Sender: FDA-Public Use
  Company Number: 2007CG00249

PATIENT
  Age: 61 Year
  Sex: Female

DRUGS (10)
  1. DIPRIVAN [Suspect]
     Route: 042
     Dates: start: 20070116, end: 20070116
  2. SODIUM PHOSPHATES [Suspect]
     Route: 048
     Dates: start: 20070115, end: 20070115
  3. TENORMIN [Concomitant]
  4. HYZAAR [Concomitant]
  5. KARDEGIC [Concomitant]
  6. OPTIMA [Concomitant]
  7. SULFARLEM [Concomitant]
     Dates: start: 20061101
  8. METEOSPASMYL [Concomitant]
     Dates: start: 20061101
  9. DUSPATALIN [Concomitant]
     Dates: start: 20061101
  10. DEBRIDAT [Concomitant]
     Dates: start: 20061101

REACTIONS (1)
  - ACUTE GENERALISED EXANTHEMATOUS PUSTULOSIS [None]
